FAERS Safety Report 7283729 (Version 7)
Quarter: 2013Q3

REPORT INFORMATION
  Report Type: Spontaneous
  Country: US (occurrence: US)
  Receive Date: 20100218
  Receipt Date: 20130820
  Transmission Date: 20140515
  Serious: Yes (Hospitalization, Other)
  Sender: FDA-Public Use
  Company Number: US-BAYER-201013957NA

PATIENT
  Age: 46 Year
  Sex: Female

DRUGS (10)
  1. YAZ [Suspect]
     Route: 048
     Dates: start: 200710, end: 200812
  2. YASMIN [Suspect]
     Route: 048
  3. AMOXICILLIN [Concomitant]
  4. ZOLPIDEM TARTRATE [Concomitant]
  5. FAMOTIDINE [Concomitant]
  6. LIPITOR [Concomitant]
  7. CLONAZEPAM [Concomitant]
  8. VALTREX [Concomitant]
  9. CELEBREX [Concomitant]
     Dosage: UNK
     Dates: start: 200611
  10. AMBIEN [Concomitant]

REACTIONS (5)
  - Thrombosis [Unknown]
  - Phlebitis superficial [None]
  - Deep vein thrombosis [Unknown]
  - Cerebrovascular accident [Unknown]
  - Anxiety [Unknown]
